FAERS Safety Report 9817986 (Version 1)
Quarter: 2013Q4

REPORT INFORMATION
  Report Type: Spontaneous
  Country: US (occurrence: None)
  Receive Date: 20131223
  Receipt Date: 20131223
  Transmission Date: 20140711
  Serious: No
  Sender: FDA-Public Use
  Company Number: 218784

PATIENT
  Sex: Female

DRUGS (3)
  1. PICATO [Suspect]
     Indication: PRECANCEROUS SKIN LESION
     Route: 061
     Dates: start: 20120901
  2. PROGESTERONE VAGINAL (PROGESTERONE) [Concomitant]
  3. VITAMIN B12 (CYANOCOBALAMIN) [Concomitant]

REACTIONS (4)
  - Application site erythema [None]
  - Application site pain [None]
  - Application site vesicles [None]
  - Incorrect product storage [None]
